FAERS Safety Report 7970714-5 (Version None)
Quarter: 2011Q4

REPORT INFORMATION
  Report Type: 
  Country: None (occurrence: None)
  Receive Date: 20111212
  Receipt Date: 20111130
  Transmission Date: 20120403
  Serious: Yes (Hospitalization)
  Sender: FDA-Public Use
  Company Number: JP-AMGEN-JPNCT2011065259

PATIENT
  Age: 75 Year
  Sex: Male
  Weight: 54 kg

DRUGS (24)
  1. FLUOROURACIL [Suspect]
     Indication: COLORECTAL CANCER
     Route: 040
     Dates: start: 20101014, end: 20101211
  2. LEVOLEUCOVORIN CALCIUM [Suspect]
     Indication: COLORECTAL CANCER
     Route: 041
     Dates: start: 20101014, end: 20101211
  3. CORTICOSTEROIDS [Concomitant]
     Indication: PROPHYLAXIS
     Route: 065
  4. HIRUDOID [Concomitant]
     Indication: PROPHYLAXIS
     Dosage: UNK
     Route: 062
  5. PANITUMUMAB [Suspect]
     Dosage: 6 MG/KG, Q2WK
     Route: 041
     Dates: start: 20110423, end: 20110423
  6. OXALIPLATIN [Suspect]
     Indication: COLORECTAL CANCER
     Route: 041
     Dates: start: 20110115
  7. PANITUMUMAB [Suspect]
     Dosage: 6 MG/KG, Q2WK
     Route: 041
     Dates: start: 20110325, end: 20110325
  8. FLUOROURACIL [Suspect]
     Route: 041
     Dates: start: 20101014, end: 20101211
  9. FLUOROURACIL [Suspect]
     Route: 040
     Dates: start: 20110115
  10. PANITUMUMAB [Suspect]
     Dosage: 6 MG/KG, Q2WK
     Route: 041
     Dates: start: 20110824
  11. PANITUMUMAB [Suspect]
     Dosage: 6 MG/KG, Q2WK
     Route: 041
     Dates: start: 20101113, end: 20101113
  12. PANITUMUMAB [Suspect]
     Dosage: 6 MG/KG, Q2WK
     Route: 041
     Dates: start: 20101211, end: 20101211
  13. PANITUMUMAB [Suspect]
     Dosage: 6 MG/KG, Q2WK
     Route: 041
     Dates: start: 20110521, end: 20110521
  14. PANITUMUMAB [Suspect]
     Dosage: 6 MG/KG, Q2WK
     Route: 041
     Dates: start: 20110728, end: 20110728
  15. GLYCYRON [Concomitant]
     Dosage: UNK
     Route: 048
  16. PANITUMUMAB [Suspect]
     Indication: COLORECTAL CANCER
     Dosage: 6 MG/KG, Q2WK
     Route: 041
     Dates: start: 20101014, end: 20101014
  17. PANITUMUMAB [Suspect]
     Dosage: 6 MG/KG, Q2WK
     Route: 041
     Dates: start: 20110115, end: 20110115
  18. FLUOROURACIL [Suspect]
     Route: 041
     Dates: start: 20110115
  19. LEVOLEUCOVORIN CALCIUM [Suspect]
     Route: 041
     Dates: start: 20110115
  20. ADALAT [Concomitant]
     Dosage: UNK
     Route: 048
  21. ANTIHISTAMINES [Concomitant]
     Indication: PROPHYLAXIS
     Route: 065
  22. PANITUMUMAB [Suspect]
     Dosage: 6 MG/KG, Q2WK
     Route: 041
     Dates: start: 20110225, end: 20110225
  23. PANITUMUMAB [Suspect]
     Dosage: 6 MG/KG, Q2WK
     Route: 041
     Dates: start: 20110623, end: 20110623
  24. IRINOTECAN HYDROCHLORIDE [Concomitant]
     Indication: COLORECTAL CANCER
     Route: 041
     Dates: start: 20101014, end: 20101211

REACTIONS (3)
  - CHOLANGITIS [None]
  - FEBRILE NEUTROPENIA [None]
  - STOMATITIS [None]
